FAERS Safety Report 4554647-2 (Version None)
Quarter: 2004Q4

REPORT INFORMATION
  Report Type: 
  Country: None (occurrence: None)
  Receive Date: 20041227
  Receipt Date: 20040506
  Transmission Date: 20050328
  Serious: Yes (Other)
  Sender: FDA-Public Use
  Company Number: 2004-06827

PATIENT
  Age: 38 Year
  Sex: Male
  Weight: 90.7194 kg

DRUGS (3)
  1. VIREAD [Suspect]
     Indication: HEPATITIS B
     Dosage: 300 MG, 1 IN 1 D, ORAL
     Route: 048
     Dates: start: 20031205, end: 20040304
  2. VIREAD [Suspect]
     Indication: HERPES VIRUS INFECTION
     Dosage: 300 MG, 1 IN 1 D, ORAL
     Route: 048
     Dates: start: 20031205, end: 20040304
  3. VALACYCLOVIR HCL [Suspect]
     Indication: RETINITIS
     Dosage: 500 MG, TWICE A DAY, ORAL
     Route: 048
     Dates: start: 20020901, end: 20040309

REACTIONS (2)
  - ALANINE AMINOTRANSFERASE INCREASED [None]
  - ASPARTATE AMINOTRANSFERASE INCREASED [None]
